FAERS Safety Report 9387004 (Version 1)
Quarter: 2013Q3

REPORT INFORMATION
  Report Type: Spontaneous
  Country: US (occurrence: None)
  Receive Date: 20130703
  Receipt Date: 20130703
  Transmission Date: 20140515
  Serious: Yes (Hospitalization)
  Sender: FDA-Public Use
  Company Number: None

PATIENT
  Age: 67 Year
  Sex: Female

DRUGS (2)
  1. RIBASPHERE [Suspect]
     Indication: HEPATITIS C
     Route: 048
     Dates: start: 20130430
  2. PEGASYS PROCLICK [Concomitant]

REACTIONS (1)
  - Dyspnoea [None]
